FAERS Safety Report 14017708 (Version 1)
Quarter: 2017Q3

REPORT INFORMATION
  Report Type: Report from Study
  Country: US (occurrence: US)
  Receive Date: 20170927
  Receipt Date: 20170927
  Transmission Date: 20171128
  Serious: Yes (Hospitalization)
  Sender: FDA-Public Use
  Company Number: US-GILEAD-2017-0295121

PATIENT
  Age: 55 Year
  Sex: Female

DRUGS (1)
  1. LEDIPASVIR/SOFOSBUVIR [Suspect]
     Active Substance: LEDIPASVIR\SOFOSBUVIR
     Indication: CHRONIC HEPATITIS C
     Dosage: 1 DF, UNK
     Route: 048

REACTIONS (7)
  - Musculoskeletal discomfort [Unknown]
  - Back pain [Unknown]
  - Chest pain [Unknown]
  - Epistaxis [Unknown]
  - Head discomfort [Unknown]
  - Haemoptysis [Unknown]
  - Hypertension [Unknown]

NARRATIVE: CASE EVENT DATE: 201709
